FAERS Safety Report 6477449-9 (Version None)
Quarter: 2009Q4

REPORT INFORMATION
  Report Type: 
  Country: None (occurrence: None)
  Receive Date: 20091207
  Receipt Date: 20091106
  Transmission Date: 20100525
  Serious: Yes (Hospitalization)
  Sender: FDA-Public Use
  Company Number: FR-SANOFI-AVENTIS-2009SA001110

PATIENT
  Age: 80 Year
  Sex: Female

DRUGS (5)
  1. LANTUS [Suspect]
     Dosage: DOSE:100 INTERNATIONAL UNIT(S)/MILLILITRE
     Route: 058
  2. KARDEGIC [Suspect]
     Route: 048
  3. SERESTA [Concomitant]
     Route: 048
  4. LAROXYL [Concomitant]
  5. PRAZEPAM [Concomitant]
     Route: 048

REACTIONS (1)
  - EPISTAXIS [None]
